FAERS Safety Report 5917533-9 (Version None)
Quarter: 2008Q4

REPORT INFORMATION
  Report Type: 
  Country: None (occurrence: None)
  Receive Date: 20081014
  Receipt Date: 20081010
  Transmission Date: 20090506
  Serious: Yes (Other)
  Sender: FDA-Public Use
  Company Number: JP-AVENTIS-200812964JP

PATIENT
  Age: 30 Year
  Sex: Female

DRUGS (9)
  1. ALLEGRA [Suspect]
     Route: 048
     Dates: start: 20050701
  2. GASTER D [Suspect]
     Dates: start: 20050701
  3. SELBEX [Suspect]
  4. LAC B [Suspect]
  5. THIATON [Suspect]
  6. SOLON [Suspect]
  7. LOXONIN                            /00890701/ [Suspect]
  8. BANAN [Suspect]
  9. CALONAL [Suspect]

REACTIONS (1)
  - LIVER DISORDER [None]
